FAERS Safety Report 4849309-8 (Version None)
Quarter: 2005Q4

REPORT INFORMATION
  Report Type: 
  Country: None (occurrence: None)
  Receive Date: 20051209
  Receipt Date: 20051129
  Transmission Date: 20060501
  Serious: Yes (Hospitalization)
  Sender: FDA-Public Use
  Company Number: US-JNJFOC-20051201166

PATIENT
  Age: 12 Year
  Sex: Male
  Weight: 45.81 kg

DRUGS (5)
  1. CONCERTA [Suspect]
     Indication: ATTENTION DEFICIT/HYPERACTIVITY DISORDER
     Route: 048
  2. ALBUTEROL [Concomitant]
     Indication: ASTHMA
     Route: 055
  3. FLUTICASONE [Concomitant]
  4. EMETROL [Concomitant]
  5. EMETROL [Concomitant]

REACTIONS (7)
  - ABDOMINAL PAIN [None]
  - AGITATION [None]
  - CONSTIPATION [None]
  - DYSKINESIA [None]
  - HEADACHE [None]
  - NAUSEA [None]
  - PRURITUS GENERALISED [None]
